FAERS Safety Report 8181903-1 (Version None)
Quarter: 2012Q1

REPORT INFORMATION
  Report Type: 
  Country: None (occurrence: None)
  Receive Date: 20120302
  Receipt Date: 20120222
  Transmission Date: 20120608
  Serious: Yes (Life-Threatening, Other)
  Sender: FDA-Public Use
  Company Number: JP-ROCHE-1014070

PATIENT
  Sex: Male
  Weight: 60 kg

DRUGS (30)
  1. IRINOTECAN HCL [Concomitant]
     Route: 041
  2. FLUOROURACIL [Concomitant]
     Indication: COLORECTAL CANCER METASTATIC
     Route: 041
     Dates: start: 20110726, end: 20110728
  3. FLUOROURACIL [Concomitant]
     Route: 041
     Dates: start: 20110823, end: 20110921
  4. PROCHLORPERAZINE [Concomitant]
     Indication: PROPHYLAXIS OF NAUSEA AND VOMITING
     Route: 048
     Dates: start: 20110816, end: 20110822
  5. FLUOROURACIL [Concomitant]
     Route: 041
     Dates: start: 20111018, end: 20111101
  6. MOTILIUM [Concomitant]
     Indication: PROPHYLAXIS OF NAUSEA AND VOMITING
     Route: 048
     Dates: start: 20100803, end: 20101110
  7. AVASTIN [Suspect]
     Indication: COLORECTAL CANCER METASTATIC
     Route: 041
     Dates: start: 20100803, end: 20110519
  8. XELODA [Suspect]
     Indication: COLORECTAL CANCER METASTATIC
     Dosage: IT IS ONE ADMINISTERING WEEKLY HOLIDAY MEDICINE FOR TWO WEEKS.
     Route: 048
     Dates: start: 20100803, end: 20100913
  9. IRINOTECAN HCL [Concomitant]
     Indication: COLORECTAL CANCER METASTATIC
     Route: 041
     Dates: start: 20110217, end: 20110519
  10. TRAMADOL HYDROCHLORIDE [Concomitant]
     Indication: CANCER PAIN
     Route: 048
     Dates: start: 20110816, end: 20110822
  11. PROCHLORPERAZINE [Concomitant]
     Route: 048
     Dates: start: 20110823, end: 20110920
  12. AVASTIN [Suspect]
     Route: 041
     Dates: start: 20110630, end: 20111101
  13. IRINOTECAN HCL [Concomitant]
     Route: 041
     Dates: start: 20110726, end: 20110906
  14. LEVOLEUCOVORIN CALCIUM [Concomitant]
     Indication: COLORECTAL CANCER METASTATIC
     Route: 041
     Dates: start: 20110726, end: 20111101
  15. XELODA [Suspect]
     Dosage: IT IS ONE ADMINISTERING WEEKLY HOLIDAY MEDICINE FOR TWO WEEKS.
     Route: 048
     Dates: start: 20101026, end: 20110118
  16. DECADRON [Concomitant]
     Indication: PROPHYLAXIS
     Route: 042
     Dates: start: 20100803, end: 20111101
  17. LOXONIN [Concomitant]
     Indication: CANCER PAIN
     Route: 048
     Dates: start: 20110609, end: 20111102
  18. OXALIPLATIN [Concomitant]
     Route: 041
     Dates: start: 20110217, end: 20110519
  19. IRINOTECAN HCL [Concomitant]
     Route: 041
     Dates: start: 20100803, end: 20110101
  20. ALOXI [Concomitant]
     Indication: PROPHYLAXIS
     Route: 042
     Dates: start: 20110726, end: 20111101
  21. PYDOXAL [Concomitant]
     Indication: PROPHYLAXIS
     Route: 048
     Dates: start: 20100803, end: 20110128
  22. IRINOTECAN HCL [Concomitant]
     Route: 041
     Dates: start: 20110920, end: 20111101
  23. MOTILIUM [Concomitant]
     Route: 048
     Dates: start: 20111025, end: 20111114
  24. XELODA [Suspect]
     Dosage: IT IS ONE ADMINISTERING WEEKLY HOLIDAY MEDICINE FOR TWO WEEKS.
     Route: 048
     Dates: start: 20100914, end: 20101025
  25. XELODA [Suspect]
     Dosage: IT IS ONE ADMINISTERING WEEKLY HOLIDAY MEDICINE FOR TWO WEEKS.
     Route: 048
     Dates: start: 20110217, end: 20110519
  26. KYTRIL [Suspect]
     Indication: PROPHYLAXIS
     Route: 042
     Dates: start: 20100803, end: 20110519
  27. OXALIPLATIN [Concomitant]
     Indication: COLORECTAL CANCER METASTATIC
     Route: 041
     Dates: start: 20100803, end: 20110104
  28. MUCOSTA [Concomitant]
     Indication: CANCER PAIN
     Route: 048
     Dates: start: 20110609, end: 20111102
  29. TRAMADOL HYDROCHLORIDE [Concomitant]
     Route: 048
     Dates: start: 20110823, end: 20110920
  30. TRAMADOL HYDROCHLORIDE [Concomitant]
     Route: 048
     Dates: start: 20111025, end: 20111114

REACTIONS (8)
  - CONSTIPATION [None]
  - DEVICE RELATED INFECTION [None]
  - INSOMNIA [None]
  - PORTAL VEIN PRESSURE INCREASED [None]
  - GASTRIC VARICES HAEMORRHAGE [None]
  - PLATELET COUNT DECREASED [None]
  - CATHETER SITE PAIN [None]
  - DYSCHEZIA [None]
